FAERS Safety Report 4612670-3 (Version None)
Quarter: 2005Q1

REPORT INFORMATION
  Report Type: 
  Country: None (occurrence: None)
  Receive Date: 20050318
  Receipt Date: 20050307
  Transmission Date: 20050727
  Serious: Yes (Other)
  Sender: FDA-Public Use
  Company Number: GB-BRISTOL-MYERS SQUIBB COMPANY-12887782

PATIENT
  Sex: Male

DRUGS (6)
  1. PRAVASTATIN SODIUM [Suspect]
     Indication: PROPHYLAXIS
     Route: 048
     Dates: start: 20041118
  2. LESCOL [Suspect]
     Indication: PROPHYLAXIS
     Route: 048
     Dates: start: 20040817
  3. SIMVASTATIN [Suspect]
     Indication: PROPHYLAXIS
     Route: 048
     Dates: start: 20040824, end: 20040902
  4. CO-PROXAMOL [Concomitant]
  5. RANITIDINE [Concomitant]
     Dates: start: 20040701
  6. TRAMADOL HCL [Concomitant]
     Dates: start: 20040401

REACTIONS (2)
  - BURSITIS [None]
  - CONTUSION [None]
